FAERS Safety Report 5917429-2 (Version None)
Quarter: 2008Q4

REPORT INFORMATION
  Report Type: 
  Country: None (occurrence: None)
  Receive Date: 20081014
  Receipt Date: 20081009
  Transmission Date: 20090506
  Serious: Yes (Hospitalization)
  Sender: FDA-Public Use
  Company Number: B0541307A

PATIENT
  Age: 65 Year
  Sex: Female
  Weight: 65 kg

DRUGS (6)
  1. LAPATINIB [Suspect]
     Route: 048
     Dates: start: 20080520
  2. TAMOXIFEN CITRATE [Suspect]
     Route: 048
     Dates: start: 20080422
  3. RIVOTRIL [Concomitant]
     Indication: ANXIETY
     Dosage: 5DROP PER DAY
     Route: 048
     Dates: start: 20050101
  4. ANAFRANIL [Concomitant]
     Indication: ANXIETY
     Dates: start: 20040101
  5. GINKOR FORT [Concomitant]
     Route: 048
     Dates: start: 19980101
  6. ALDACTONE [Concomitant]
     Dosage: 50MG PER DAY
     Route: 048
     Dates: start: 19990101

REACTIONS (1)
  - DIPLOPIA [None]
